FAERS Safety Report 23259256 (Version 1)
Quarter: 2023Q4

REPORT INFORMATION
  Report Type: Spontaneous
  Country: CA (occurrence: None)
  Receive Date: 20231204
  Receipt Date: 20231204
  Transmission Date: 20240110
  Serious: Yes (Death, Other)
  Sender: FDA-Public Use
  Company Number: 2023A273637

PATIENT
  Age: 13149 Day
  Sex: Female

DRUGS (2)
  1. IMFINZI [Suspect]
     Active Substance: DURVALUMAB
     Indication: Bladder cancer
     Dates: start: 2022
  2. CISPLATIN [Concomitant]
     Active Substance: CISPLATIN

REACTIONS (1)
  - Death [Fatal]
